FAERS Safety Report 25157094 (Version 1)
Quarter: 2025Q2

REPORT INFORMATION
  Report Type: Spontaneous
  Country: FR (occurrence: FR)
  Receive Date: 20250403
  Receipt Date: 20250403
  Transmission Date: 20250716
  Serious: Yes (Other)
  Sender: ROCHE
  Company Number: None

PATIENT
  Age: 61 Year
  Sex: Female
  Weight: 69 kg

DRUGS (7)
  1. CELLCEPT [Suspect]
     Active Substance: MYCOPHENOLATE MOFETIL
     Indication: Allogenic stem cell transplantation
     Route: 042
     Dates: start: 20230923, end: 20231023
  2. BUSULFAN [Suspect]
     Active Substance: BUSULFAN
     Indication: Allogenic stem cell transplantation
     Dosage: STRENGTH: 6 MG/ML, SOLUTION FOR DILUTION FOR INFUSION
     Route: 042
     Dates: start: 20230920, end: 20230922
  3. FLUDARABINE [Suspect]
     Active Substance: FLUDARABINE PHOSPHATE
     Indication: Allogenic stem cell transplantation
     Dosage: OR 70MG/DAY, STRENGTH: 25 MG/ML, SOLUTION FOR DILUTION FOR INJECTION OR INFUSION
     Route: 042
     Dates: start: 20230920, end: 20230922
  4. THIOTEPA [Suspect]
     Active Substance: THIOTEPA
     Indication: Allogenic stem cell transplantation
     Dosage: SOIT 300MG/J
     Route: 042
     Dates: start: 20230919, end: 20230919
  5. CYCLOSPORINE [Suspect]
     Active Substance: CYCLOSPORINE
     Indication: Allogenic stem cell transplantation
     Dosage: OR 200MG/DAY, STRENGTH: 50 MG/ML, SOLUTION INJECTABLE POUR PERFUSION I.V.
     Route: 042
     Dates: start: 20230923, end: 20230928
  6. CYCLOSPORINE [Suspect]
     Active Substance: CYCLOSPORINE
     Route: 042
     Dates: start: 20230928, end: 20231005
  7. CYCLOSPORINE [Suspect]
     Active Substance: CYCLOSPORINE
     Route: 042
     Dates: start: 20231005, end: 20231014

REACTIONS (1)
  - Mucosal inflammation [Recovered/Resolved]

NARRATIVE: CASE EVENT DATE: 20230930
